FAERS Safety Report 11236341 (Version 1)
Quarter: 2015Q3

REPORT INFORMATION
  Report Type: Spontaneous
  Country: US (occurrence: US)
  Receive Date: 20150702
  Receipt Date: 20150702
  Transmission Date: 20151125
  Serious: Yes (Other)
  Sender: FDA-Public Use
  Company Number: US-LUNDBECK-DKLU2001026

PATIENT
  Sex: Female

DRUGS (1)
  1. NORTHERA [Suspect]
     Active Substance: DROXIDOPA
     Indication: PRODUCT USED FOR UNKNOWN INDICATION
     Route: 065

REACTIONS (7)
  - Aphasia [Unknown]
  - Dyspnoea [Unknown]
  - Migraine [Unknown]
  - Rash [Unknown]
  - Flushing [Unknown]
  - Skin ulcer [Unknown]
  - Blood pressure increased [Unknown]
